FAERS Safety Report 6384781-6 (Version None)
Quarter: 2009Q4

REPORT INFORMATION
  Report Type: 
  Country: None (occurrence: None)
  Receive Date: 20091001
  Receipt Date: 20090927
  Transmission Date: 20100525
  Serious: Yes (Death, Hospitalization, Other)
  Sender: FDA-Public Use
  Company Number: US-AMGEN-US352350

PATIENT
  Sex: Male
  Weight: 66 kg

DRUGS (17)
  1. NPLATE [Suspect]
     Indication: IDIOPATHIC THROMBOCYTOPENIC PURPURA
     Route: 058
     Dates: start: 20090109, end: 20090624
  2. NPLATE [Suspect]
     Route: 058
     Dates: start: 20090116
  3. NPLATE [Suspect]
     Route: 058
     Dates: start: 20090507
  4. NPLATE [Suspect]
     Route: 058
     Dates: start: 20090522
  5. NPLATE [Suspect]
     Route: 058
     Dates: start: 20090624
  6. CORTICOSTEROIDS [Concomitant]
     Dates: start: 20081115
  7. AMIODARONE [Concomitant]
     Dates: start: 20010101, end: 20090818
  8. SYNTHROID [Concomitant]
     Route: 048
     Dates: start: 19500101, end: 20090818
  9. PROSCAR [Concomitant]
     Route: 048
     Dates: start: 20040101, end: 20090818
  10. ZOVIRAX [Concomitant]
     Route: 048
     Dates: start: 20081005, end: 20090818
  11. BACTRIM DS [Concomitant]
     Route: 048
     Dates: start: 20081005, end: 20090818
  12. LASIX [Concomitant]
     Route: 048
     Dates: start: 20090601, end: 20090818
  13. PREDNISONE [Concomitant]
     Route: 048
     Dates: start: 20081203, end: 20090201
  14. REVLIMID [Concomitant]
     Dates: start: 20090514, end: 20090601
  15. KEPIVANCE [Concomitant]
     Dates: start: 20090323, end: 20090818
  16. RED BLOOD CELLS [Concomitant]
     Dates: start: 20081001, end: 20090818
  17. PLATELETS [Concomitant]
     Dates: start: 20090601, end: 20090818

REACTIONS (7)
  - CARDIAC FAILURE [None]
  - CARDIOMYOPATHY [None]
  - CHRONIC LYMPHOCYTIC LEUKAEMIA [None]
  - DRUG INEFFECTIVE [None]
  - PANCYTOPENIA [None]
  - PNEUMONIA [None]
  - SEPSIS [None]
